FAERS Safety Report 8182209 (Version 2)
Quarter: 2013Q4

REPORT INFORMATION
  Report Type: Spontaneous
  Country: US (occurrence: US)
  Receive Date: 20111014
  Receipt Date: 20131206
  Transmission Date: 20140711
  Serious: Yes (Other)
  Sender: FDA-Public Use
  Company Number: US-ROCHE-1002374

PATIENT
  Sex: Female
  Weight: 79.45 kg

DRUGS (4)
  1. ACCUTANE [Suspect]
     Indication: ACNE
     Route: 065
     Dates: start: 200701, end: 200805
  2. AMNESTEEM [Suspect]
     Indication: ACNE
     Route: 065
     Dates: start: 200701, end: 200805
  3. SOTRET [Suspect]
     Indication: ACNE
     Route: 065
     Dates: start: 200701, end: 200805
  4. CLARAVIS [Suspect]
     Indication: ACNE
     Route: 065
     Dates: start: 200701, end: 200805

REACTIONS (6)
  - Colitis microscopic [Unknown]
  - Inflammatory bowel disease [Unknown]
  - Irritable bowel syndrome [Unknown]
  - Anxiety [Unknown]
  - Injury [Unknown]
  - Dry skin [Unknown]
